FAERS Safety Report 16761145 (Version 1)
Quarter: 2019Q3

REPORT INFORMATION
  Report Type: Spontaneous
  Country: US (occurrence: US)
  Receive Date: 20190711
  Receipt Date: 20190711
  Transmission Date: 20191005
  Serious: Yes (Hospitalization, Other)
  Sender: FDA-Public Use
  Company Number: None

PATIENT
  Age: 25 Year
  Sex: Female
  Weight: 45.36 kg

DRUGS (6)
  1. PROPRANOLOL [Concomitant]
     Active Substance: PROPRANOLOL HYDROCHLORIDE
  2. PYRIDOSTIGMINE [Concomitant]
     Active Substance: PYRIDOSTIGMINE
  3. BOTOX [Concomitant]
     Active Substance: ONABOTULINUMTOXINA
  4. FIRDAPSE [Suspect]
     Active Substance: AMIFAMPRIDINE
     Indication: MYASTHENIC SYNDROME
     Dosage: ?          QUANTITY:10 MG MILLIGRAM(S);?
     Route: 048
     Dates: start: 201902, end: 201906
  5. VT B12 INJECTION [Concomitant]
  6. KLONOPIN [Concomitant]
     Active Substance: CLONAZEPAM

REACTIONS (14)
  - Diarrhoea [None]
  - Therapeutic product effect delayed [None]
  - Loss of personal independence in daily activities [None]
  - Dyspnoea [None]
  - Abdominal pain upper [None]
  - Autonomic nervous system imbalance [None]
  - Malabsorption [None]
  - Screaming [None]
  - Condition aggravated [None]
  - Constipation [None]
  - Oxygen saturation decreased [None]
  - Fall [None]
  - Abdominal discomfort [None]
  - Intestinal obstruction [None]
